FAERS Safety Report 19467354 (Version 2)
Quarter: 2021Q3

REPORT INFORMATION
  Report Type: Report from Study
  Country: JP (occurrence: JP)
  Receive Date: 20210628
  Receipt Date: 20210811
  Transmission Date: 20211014
  Serious: Yes (Other)
  Sender: FDA-Public Use
  Company Number: NVSJ2021JP006052

PATIENT
  Age: 2 Year
  Sex: Female

DRUGS (33)
  1. ILARIS [Suspect]
     Active Substance: CANAKINUMAB
     Dosage: 52.5 MG
     Route: 058
     Dates: start: 20190731
  2. ILARIS [Suspect]
     Active Substance: CANAKINUMAB
     Dosage: 60 MG
     Route: 058
     Dates: start: 20200819
  3. ILARIS [Suspect]
     Active Substance: CANAKINUMAB
     Dosage: 67.5 MG
     Route: 058
     Dates: start: 20210203
  4. NEORAL [Concomitant]
     Active Substance: CYCLOSPORINE
     Indication: STILL^S DISEASE
     Dosage: 40 MG
     Route: 048
     Dates: start: 20190410, end: 20190927
  5. ILARIS [Suspect]
     Active Substance: CANAKINUMAB
     Indication: STILL^S DISEASE
     Dosage: 52.5 MG
     Route: 058
     Dates: start: 20190410
  6. ILARIS [Suspect]
     Active Substance: CANAKINUMAB
     Dosage: 52.5 MG
     Route: 058
     Dates: start: 20200115
  7. ILARIS [Suspect]
     Active Substance: CANAKINUMAB
     Dosage: 67.5 MG
     Route: 058
     Dates: start: 20210303
  8. ILARIS [Suspect]
     Active Substance: CANAKINUMAB
     Dosage: 52.5 MG
     Route: 058
     Dates: start: 20190705
  9. ILARIS [Suspect]
     Active Substance: CANAKINUMAB
     Dosage: 52.5 MG
     Route: 058
     Dates: start: 20190928
  10. ILARIS [Suspect]
     Active Substance: CANAKINUMAB
     Dosage: 52.5 MG
     Route: 058
     Dates: start: 20191218
  11. ILARIS [Suspect]
     Active Substance: CANAKINUMAB
     Dosage: 60 MG
     Route: 058
     Dates: start: 20200305
  12. ILARIS [Suspect]
     Active Substance: CANAKINUMAB
     Dosage: 60 MG
     Route: 058
     Dates: start: 20200527
  13. ILARIS [Suspect]
     Active Substance: CANAKINUMAB
     Dosage: 52.5 MG
     Route: 058
     Dates: start: 20190828
  14. ILARIS [Suspect]
     Active Substance: CANAKINUMAB
     Dosage: 60 MG
     Route: 058
     Dates: start: 20200428
  15. ILARIS [Suspect]
     Active Substance: CANAKINUMAB
     Dosage: 60 MG
     Route: 058
     Dates: start: 20200916
  16. ILARIS [Suspect]
     Active Substance: CANAKINUMAB
     Dosage: 67.5 MG
     Route: 058
     Dates: start: 20210105
  17. ILARIS [Suspect]
     Active Substance: CANAKINUMAB
     Dosage: 52.5 MG
     Route: 058
     Dates: start: 20190510
  18. ILARIS [Suspect]
     Active Substance: CANAKINUMAB
     Dosage: 52.5 MG
     Route: 058
     Dates: start: 20190605
  19. ILARIS [Suspect]
     Active Substance: CANAKINUMAB
     Dosage: 52.5 MG
     Route: 058
     Dates: start: 20191120
  20. ILARIS [Suspect]
     Active Substance: CANAKINUMAB
     Dosage: 67.5 MG
     Route: 058
     Dates: start: 20201209
  21. PREDNISOLONE. [Suspect]
     Active Substance: PREDNISOLONE
     Dosage: 1 MG
     Route: 048
     Dates: start: 20191218, end: 20200114
  22. ILARIS [Suspect]
     Active Substance: CANAKINUMAB
     Dosage: 60 MG
     Route: 058
     Dates: start: 20200331
  23. ILARIS [Suspect]
     Active Substance: CANAKINUMAB
     Dosage: 60 MG
     Route: 058
     Dates: start: 20201015
  24. ILARIS [Suspect]
     Active Substance: CANAKINUMAB
     Dosage: 60 MG
     Route: 058
     Dates: start: 20201111
  25. ILARIS [Suspect]
     Active Substance: CANAKINUMAB
     Dosage: 67.5 MG
     Route: 058
     Dates: start: 20210331
  26. PREDNISOLONE. [Suspect]
     Active Substance: PREDNISOLONE
     Indication: STILL^S DISEASE
     Dosage: 2 MG
     Route: 048
     Dates: start: 20190410, end: 20190801
  27. ILARIS [Suspect]
     Active Substance: CANAKINUMAB
     Dosage: 52.5 MG
     Route: 058
     Dates: start: 20191023
  28. PREDNISOLONE. [Suspect]
     Active Substance: PREDNISOLONE
     Dosage: 0.5 MG
     Route: 048
     Dates: start: 20200115, end: 20200311
  29. ILARIS [Suspect]
     Active Substance: CANAKINUMAB
     Dosage: 60 MG
     Route: 058
     Dates: start: 20200205
  30. ILARIS [Suspect]
     Active Substance: CANAKINUMAB
     Dosage: 60 MG
     Route: 058
     Dates: start: 20200624
  31. ILARIS [Suspect]
     Active Substance: CANAKINUMAB
     Dosage: 60 MG
     Route: 058
     Dates: start: 20200722
  32. PREDNISOLONE. [Suspect]
     Active Substance: PREDNISOLONE
     Dosage: 1.5 MG
     Route: 048
     Dates: start: 20190802, end: 20191217
  33. NEORAL [Concomitant]
     Active Substance: CYCLOSPORINE
     Dosage: 20 MG
     Route: 048
     Dates: start: 20190928, end: 20191023

REACTIONS (2)
  - Adrenal insufficiency [Recovering/Resolving]
  - Otitis media [Recovering/Resolving]

NARRATIVE: CASE EVENT DATE: 20190609
